FAERS Safety Report 10023695 (Version 1)
Quarter: 2014Q1

REPORT INFORMATION
  Report Type: Spontaneous
  Country: ES (occurrence: ES)
  Receive Date: 20140320
  Receipt Date: 20140320
  Transmission Date: 20141002
  Serious: Yes (Other)
  Sender: FDA-Public Use
  Company Number: ES-JNJFOC-20140309254

PATIENT
  Age: 24 Year
  Sex: Female

DRUGS (2)
  1. EVRA [Suspect]
     Indication: CONTRACEPTION
     Route: 062
     Dates: start: 20140128, end: 20140218
  2. ITRACONAZOLE [Interacting]
     Indication: VULVOVAGINAL CANDIDIASIS
     Route: 048
     Dates: start: 20140214, end: 20140216

REACTIONS (3)
  - Pregnancy with contraceptive patch [Unknown]
  - Drug interaction [Unknown]
  - Exposure during pregnancy [Unknown]
